FAERS Safety Report 9695052 (Version 2)
Quarter: 2014Q1

REPORT INFORMATION
  Report Type: Spontaneous
  Country: DE (occurrence: DE)
  Receive Date: 20131119
  Receipt Date: 20140204
  Transmission Date: 20141002
  Serious: Yes (Other)
  Sender: FDA-Public Use
  Company Number: PHHY2013DE130799

PATIENT
  Sex: Male

DRUGS (3)
  1. EXFORGE HCT [Suspect]
     Indication: HYPERTENSION
     Dosage: 1 DF (VALS 160 MG, AMLO 10 MG AND HCTZ 25 MG), ), QD
     Dates: start: 201101
  2. ADENURIC [Concomitant]
     Indication: BLOOD URIC ACID INCREASED
     Dosage: 1 DF (80 MG), QD
     Dates: start: 201205
  3. ADENURIC [Concomitant]
     Indication: GOUT

REACTIONS (4)
  - Psoriatic arthropathy [Recovering/Resolving]
  - Joint swelling [Recovering/Resolving]
  - Arthralgia [Recovering/Resolving]
  - Mobility decreased [Not Recovered/Not Resolved]
